FAERS Safety Report 8439024-6 (Version None)
Quarter: 2012Q2

REPORT INFORMATION
  Report Type: 
  Country: None (occurrence: None)
  Receive Date: 20120615
  Receipt Date: 20120611
  Transmission Date: 20120825
  Serious: Yes (Other)
  Sender: FDA-Public Use
  Company Number: US-BAYER-2012-038946

PATIENT
  Age: 35 Year
  Sex: Female
  Weight: 66.667 kg

DRUGS (3)
  1. MOTRIN [Concomitant]
     Dosage: 800 MG, UNK
  2. CYTOTEC [Concomitant]
  3. MIRENA [Suspect]
     Indication: CONTRACEPTION
     Dosage: 20 ?G/D, CONT
     Route: 015
     Dates: start: 20120208, end: 20120501

REACTIONS (4)
  - DEVICE DISLOCATION [None]
  - UTERINE PERFORATION [None]
  - BACK PAIN [None]
  - PAIN IN EXTREMITY [None]
